FAERS Safety Report 12226045 (Version 1)
Quarter: 2016Q1

REPORT INFORMATION
  Report Type: Spontaneous
  Country: US (occurrence: US)
  Receive Date: 20160331
  Receipt Date: 20160331
  Transmission Date: 20160526
  Serious: Yes (Hospitalization)
  Sender: FDA-Public Use
  Company Number: US-UNITED THERAPEUTICS-UNT-2016-004914

PATIENT
  Age: 18 Year
  Sex: Female
  Weight: 97.96 kg

DRUGS (2)
  1. ADCIRCA [Concomitant]
     Active Substance: TADALAFIL
     Indication: PRODUCT USED FOR UNKNOWN INDICATION
  2. ORENITRAM [Suspect]
     Active Substance: TREPROSTINIL
     Indication: PULMONARY ARTERIAL HYPERTENSION
     Dosage: 10 MG TOTAL DAILY DOSE
     Route: 048
     Dates: start: 20150908

REACTIONS (1)
  - Haemodynamic instability [Unknown]

NARRATIVE: CASE EVENT DATE: 201603
